FAERS Safety Report 5799686-9 (Version None)
Quarter: 2008Q2

REPORT INFORMATION
  Report Type: 
  Country: None (occurrence: None)
  Receive Date: 20080601
  Receipt Date: 20080130
  Transmission Date: 20081010
  Serious: No
  Sender: FDA-Public Use
  Company Number: US200801006974

PATIENT
  Age: 75 Year
  Sex: Male
  Weight: 86.6 kg

DRUGS (5)
  1. BYETTA [Suspect]
     Indication: TYPE 2 DIABETES MELLITUS
     Dosage: 5 UG, 2/D, SUBCUTANEOUS
     Route: 058
     Dates: start: 20080123, end: 20080128
  2. GLYBURIDE [Concomitant]
  3. DRUG USED IN DIABETES [Concomitant]
  4. LISINOPRIL /USA/ (LISINOPRIL) [Concomitant]
  5. METOPROLOL TARTRATE [Concomitant]

REACTIONS (6)
  - ABDOMINAL PAIN [None]
  - BLOOD GLUCOSE FLUCTUATION [None]
  - FATIGUE [None]
  - HEADACHE [None]
  - INFLUENZA LIKE ILLNESS [None]
  - NAUSEA [None]
